FAERS Safety Report 17849260 (Version 1)
Quarter: 2020Q2

REPORT INFORMATION
  Report Type: Spontaneous
  Country: US (occurrence: US)
  Receive Date: 20200601
  Receipt Date: 20200601
  Transmission Date: 20200714
  Serious: Yes (Death)
  Sender: FDA-Public Use
  Company Number: None

PATIENT
  Age: 56 Year
  Sex: Male
  Weight: 108.8 kg

DRUGS (19)
  1. PRAZOSIN 1MG [Concomitant]
     Dates: start: 20200523, end: 20200530
  2. LOVENOX [Concomitant]
     Active Substance: ENOXAPARIN SODIUM
     Dates: start: 20200521, end: 20200528
  3. PLAQUENIL 200MG [Concomitant]
     Dates: start: 20200523, end: 20200528
  4. ASPIRIN 81MG [Concomitant]
     Active Substance: ASPIRIN
     Dates: start: 20200523, end: 20200530
  5. LACTINEX GRANULES [Concomitant]
     Dates: start: 20200524, end: 20200530
  6. ZINC SULFATE 200MG [Concomitant]
     Dates: start: 20200521, end: 20200530
  7. LIPITOR [Concomitant]
     Active Substance: ATORVASTATIN CALCIUM
     Dates: start: 20200522, end: 20200530
  8. HEPARIN 25000 UNIT/250ML [Concomitant]
     Dates: start: 20200528, end: 20200530
  9. VASOSTRICT [Concomitant]
     Active Substance: VASOPRESSIN
     Dates: start: 20200530, end: 20200530
  10. LASIX 40MG/4ML IV [Concomitant]
     Dates: start: 20200522, end: 20200530
  11. PROTONIX [Concomitant]
     Active Substance: PANTOPRAZOLE SODIUM
     Dates: start: 20200521, end: 20200530
  12. ZYLOPRIM 100MG [Concomitant]
     Dates: start: 20200522, end: 20200530
  13. PROPOFOL. [Concomitant]
     Active Substance: PROPOFOL
     Dates: start: 20200530, end: 20200530
  14. ROBITUSSIN AC SYRUP [Concomitant]
     Dates: start: 20200522, end: 20200530
  15. ASCORBIC ACID 500MG [Concomitant]
     Dates: start: 20200521, end: 20200530
  16. VITAMIN D 2000 UNITS [Concomitant]
     Dates: start: 20200522, end: 20200530
  17. PROVENTIL HFA [Concomitant]
     Active Substance: ALBUTEROL SULFATE
     Dates: start: 20200521, end: 20200530
  18. ZOLOFT [Concomitant]
     Active Substance: SERTRALINE HYDROCHLORIDE
     Dates: start: 20200523, end: 20200530
  19. REMDESIVIR. [Suspect]
     Active Substance: REMDESIVIR
     Indication: COVID-19
     Route: 041
     Dates: start: 20200529, end: 20200530

REACTIONS (3)
  - Cough [None]
  - Pulse absent [None]
  - Oxygen saturation decreased [None]

NARRATIVE: CASE EVENT DATE: 20200530
